FAERS Safety Report 9866419 (Version 2)
Quarter: 2014Q4

REPORT INFORMATION
  Report Type: Report from Study
  Country: MX (occurrence: MX)
  Receive Date: 20140204
  Receipt Date: 20141020
  Transmission Date: 20150529
  Serious: Yes (Disabling, Other)
  Sender: FDA-Public Use
  Company Number: MX-ROCHE-1342587

PATIENT
  Age: 60 Year
  Sex: Male

DRUGS (4)
  1. INSULIN [Concomitant]
     Active Substance: INSULIN NOS
     Indication: TYPE 2 DIABETES MELLITUS
     Dosage: DAILY
     Route: 058
  2. LUCENTIS [Suspect]
     Active Substance: RANIBIZUMAB
     Indication: VISUAL ACUITY REDUCED
     Dosage: 0.5 MG/0.05 ML
     Route: 050
     Dates: start: 201302
  3. LUCENTIS [Suspect]
     Active Substance: RANIBIZUMAB
     Route: 065
     Dates: end: 2013
  4. MICARDIS PLUS [Concomitant]
     Active Substance: HYDROCHLOROTHIAZIDE\TELMISARTAN
     Indication: HYPERTENSION
     Route: 048

REACTIONS (8)
  - Off label use [Unknown]
  - Visual acuity reduced [Unknown]
  - Inappropriate schedule of drug administration [Unknown]
  - Cataract [Unknown]
  - Eye haemorrhage [Recovered/Resolved]
  - Glaucoma [Unknown]
  - Blindness [Recovered/Resolved]
  - Ocular hyperaemia [Unknown]

NARRATIVE: CASE EVENT DATE: 201302
